FAERS Safety Report 23783328 (Version 2)
Quarter: 2024Q2

REPORT INFORMATION
  Report Type: Spontaneous
  Country: US (occurrence: US)
  Receive Date: 20240425
  Receipt Date: 20240612
  Transmission Date: 20240716
  Serious: No
  Sender: FDA-Public Use
  Company Number: US-Calliditas-2024CAL00592

PATIENT
  Age: 50 Year
  Sex: Female
  Weight: 43.3 kg

DRUGS (1)
  1. TARPEYO [Suspect]
     Active Substance: BUDESONIDE
     Indication: IgA nephropathy
     Dosage: 16MG (4MG CAPSULES) ONCE DAILY
     Route: 048
     Dates: start: 20240224

REACTIONS (5)
  - Cushingoid [Recovering/Resolving]
  - Abdominal distension [Recovering/Resolving]
  - Headache [Unknown]
  - Blood pressure increased [Unknown]
  - Latent tuberculosis [Unknown]
